FAERS Safety Report 8759746 (Version 1)
Quarter: 2012Q4

REPORT INFORMATION
  Report Type: Report from Study
  Country: US (occurrence: US)
  Receive Date: 20120829
  Receipt Date: 20120829
  Transmission Date: 20130627
  Serious: Yes (Hospitalization)
  Sender: FDA-Public Use
  Company Number: US-ROCHE-1030307

PATIENT
  Age: 59 Year
  Sex: Male
  Weight: 102 kg

DRUGS (4)
  1. RANIBIZUMAB [Suspect]
     Indication: DIABETIC RETINAL OEDEMA
     Route: 050
     Dates: start: 20110624
  2. VITAMIN [Concomitant]
  3. ZEAXANTHIN [Concomitant]
  4. VITAMIN B12 [Concomitant]

REACTIONS (1)
  - Localised infection [Unknown]
